FAERS Safety Report 8379480-5 (Version None)
Quarter: 2012Q2

REPORT INFORMATION
  Report Type: 
  Country: None (occurrence: None)
  Receive Date: 20120523
  Receipt Date: 20120509
  Transmission Date: 20120825
  Serious: Yes (Hospitalization, Other)
  Sender: FDA-Public Use
  Company Number: US-JNJFOC-20120407250

PATIENT
  Sex: Male
  Weight: 61.24 kg

DRUGS (12)
  1. DURAGESIC-100 [Suspect]
     Route: 062
     Dates: start: 20120405
  2. DURAGESIC-100 [Suspect]
     Route: 062
     Dates: start: 20090101
  3. SOMA [Concomitant]
     Indication: MUSCLE SPASMS
     Route: 048
  4. CORTICOSTEROIDS [Concomitant]
     Indication: PSORIASIS
     Route: 061
  5. TESTOSTERONE [Suspect]
     Indication: BLOOD TESTOSTERONE DECREASED
     Route: 061
  6. DILAUDID [Concomitant]
     Indication: BREAKTHROUGH PAIN
     Route: 048
  7. FENTANYL-100 [Suspect]
     Indication: BACK PAIN
     Route: 062
  8. DURAGESIC-100 [Suspect]
     Route: 062
     Dates: start: 19990101
  9. DALMANE [Concomitant]
     Indication: SLEEP DISORDER
     Route: 048
  10. DURAGESIC-100 [Suspect]
     Indication: BACK PAIN
     Route: 062
     Dates: start: 20051201
  11. VALIUM [Concomitant]
     Indication: MUSCLE SPASMS
     Route: 048
     Dates: start: 19920101
  12. DURAGESIC-100 [Suspect]
     Route: 062
     Dates: end: 20051201

REACTIONS (18)
  - SPINAL OPERATION [None]
  - HEPATIC ENZYME INCREASED [None]
  - BACK DISORDER [None]
  - PRODUCT LABEL CONFUSION [None]
  - FACIAL BONES FRACTURE [None]
  - PERONEAL NERVE PALSY [None]
  - PRODUCT PACKAGING QUANTITY ISSUE [None]
  - FALL [None]
  - MUSCLE ATROPHY [None]
  - DEHYDRATION [None]
  - DRUG INEFFECTIVE [None]
  - HYPOAESTHESIA [None]
  - BLOOD TESTOSTERONE DECREASED [None]
  - PAIN [None]
  - RENAL FAILURE [None]
  - MUSCULAR WEAKNESS [None]
  - THINKING ABNORMAL [None]
  - ALOPECIA [None]
